FAERS Safety Report 10617499 (Version 3)
Quarter: 2014Q4

REPORT INFORMATION
  Report Type: Spontaneous
  Country: JP (occurrence: JP)
  Receive Date: 20141201
  Receipt Date: 20141219
  Transmission Date: 20150529
  Serious: Yes (Death, Life-Threatening)
  Sender: FDA-Public Use
  Company Number: JP-GE HEALTHCARE MEDICAL DIAGNOSTICS-OMPQ-PR-1411S-1517

PATIENT
  Age: 73 Year
  Sex: Male
  Weight: 59 kg

DRUGS (5)
  1. OMNIPAQUE [Suspect]
     Active Substance: IOHEXOL
     Indication: THERAPEUTIC PROCEDURE
  2. OMNIPAQUE [Suspect]
     Active Substance: IOHEXOL
     Indication: DIAGNOSTIC PROCEDURE
  3. XYLOCAINE [Suspect]
     Active Substance: LIDOCAINE HYDROCHLORIDE
     Indication: LOCAL ANAESTHESIA
     Route: 058
     Dates: start: 20141114, end: 20141114
  4. HEPARIN [Suspect]
     Active Substance: HEPARIN SODIUM
     Indication: THROMBOSIS PROPHYLAXIS
     Route: 042
     Dates: start: 20141114, end: 20141114
  5. OMNIPAQUE [Suspect]
     Active Substance: IOHEXOL
     Indication: ARTERIAL RESTENOSIS
     Route: 013
     Dates: start: 20141114, end: 20141114

REACTIONS (2)
  - Brain oedema [Fatal]
  - Shock [Fatal]

NARRATIVE: CASE EVENT DATE: 20141114
